FAERS Safety Report 5466746-1 (Version None)
Quarter: 2007Q3

REPORT INFORMATION
  Report Type: 
  Country: None (occurrence: None)
  Receive Date: 20070925
  Receipt Date: 20070911
  Transmission Date: 20080115
  Serious: Yes (Hospitalization, Other)
  Sender: FDA-Public Use
  Company Number: US-ELI_LILLY_AND_COMPANY-US200606002831

PATIENT
  Age: 43 Year
  Sex: Female
  Weight: 90.702 kg

DRUGS (31)
  1. ZYPREXA [Suspect]
     Dosage: 2.5 MG, UNK
  2. ZYPREXA [Suspect]
     Dosage: 5 MG, UNK
  3. ZYPREXA [Suspect]
     Dosage: 10 MG, UNK
     Dates: start: 19990101, end: 20050101
  4. SEROQUEL [Concomitant]
     Dosage: UNK, UNK
     Dates: start: 20060103
  5. GEODON [Concomitant]
  6. THORAZINE [Concomitant]
  7. HALDOL [Concomitant]
  8. STELAZINE [Concomitant]
  9. LITHIUM [Concomitant]
  10. DEPAKOTE [Concomitant]
  11. ZOLOFT [Concomitant]
     Dates: start: 20060103
  12. CYMBALTA [Concomitant]
     Dates: start: 20061019
  13. RISPERDAL [Concomitant]
     Dates: start: 20001025
  14. PHENERGAN HCL [Concomitant]
     Dates: start: 20001228
  15. TEGRETOL [Concomitant]
     Dates: start: 20000101, end: 20020101
  16. KLONOPIN [Concomitant]
     Dates: start: 19990822
  17. VALIUM [Concomitant]
     Dates: start: 19980402
  18. ATIVAN [Concomitant]
     Dates: start: 19980402
  19. XANAX [Concomitant]
     Dates: start: 20030629
  20. HALCION [Concomitant]
     Dates: start: 19990527
  21. BUSPAR [Concomitant]
     Dates: start: 20020927, end: 20021010
  22. ATARAX [Concomitant]
     Dates: start: 19990405
  23. CELEXA [Concomitant]
     Dates: start: 20010720, end: 20010725
  24. PROZAC [Concomitant]
     Dates: start: 19980326
  25. PAXIL [Concomitant]
     Dates: start: 19990423
  26. EFFEXOR [Concomitant]
     Dates: start: 20020805
  27. ELAVIL [Concomitant]
     Dates: start: 20010519, end: 20010522
  28. LOPRESSOR [Concomitant]
     Dates: start: 19980531
  29. ARISTOCORT [Concomitant]
     Dates: start: 20010624
  30. HYDROCORT [Concomitant]
     Dates: start: 20010521, end: 20010526
  31. LASIX [Concomitant]
     Dates: start: 19991118

REACTIONS (9)
  - BLOOD TRIGLYCERIDES INCREASED [None]
  - CARDIAC DISORDER [None]
  - CEREBROVASCULAR ACCIDENT [None]
  - DIABETES MELLITUS [None]
  - DIABETIC COMA [None]
  - HYPERGLYCAEMIA [None]
  - HYPERTENSION [None]
  - HYPOGLYCAEMIA [None]
  - SYNCOPE [None]
